FAERS Safety Report 6485758-2 (Version None)
Quarter: 2009Q4

REPORT INFORMATION
  Report Type: 
  Country: None (occurrence: None)
  Receive Date: 20091204
  Receipt Date: 20091124
  Transmission Date: 20100525
  Serious: Yes (Other)
  Sender: FDA-Public Use
  Company Number: 8055152

PATIENT
  Age: 9 Year
  Sex: Male

DRUGS (2)
  1. KEPPRA [Suspect]
     Dosage: PO
     Route: 048
  2. VIMPAT [Suspect]

REACTIONS (1)
  - STEVENS-JOHNSON SYNDROME [None]
